FAERS Safety Report 10008776 (Version 2)
Quarter: 2014Q1

REPORT INFORMATION
  Report Type: Spontaneous
  Country: US (occurrence: US)
  Receive Date: 20140312
  Receipt Date: 20140312
  Transmission Date: 20141002
  Serious: No
  Sender: FDA-Public Use
  Company Number: US-INCYTE CORPORATION-2012IN000589

PATIENT
  Age: 70 Year
  Sex: Male

DRUGS (6)
  1. JAKAFI [Suspect]
     Indication: MYELOFIBROSIS
     Dosage: 15 MG, BID
     Route: 048
     Dates: start: 20120319
  2. JAKAFI [Suspect]
     Indication: MYELOID METAPLASIA
  3. ALLOPURINOL [Concomitant]
  4. AMLODIPINE [Concomitant]
  5. FOLIC ACID [Concomitant]
  6. CENTRUM SILVER [Concomitant]

REACTIONS (1)
  - Dry eye [Unknown]
